FAERS Safety Report 10203503 (Version 1)
Quarter: 2014Q2

REPORT INFORMATION
  Report Type: Spontaneous
  Country: US (occurrence: US)
  Receive Date: 20140529
  Receipt Date: 20140529
  Transmission Date: 20141212
  Serious: Yes (Other)
  Sender: FDA-Public Use
  Company Number: US-AMGEN-USASP2014038291

PATIENT
  Age: 89 Year
  Sex: Female

DRUGS (2)
  1. PROLIA [Suspect]
     Indication: OSTEOPOROSIS POSTMENOPAUSAL
     Dosage: UNK UNK, Q6MO
     Route: 065
  2. VITAMINS                           /00067501/ [Concomitant]

REACTIONS (4)
  - Bladder cancer [Unknown]
  - Pollakiuria [Unknown]
  - Micturition urgency [Unknown]
  - Cystitis [Unknown]
